FAERS Safety Report 13487349 (Version 1)
Quarter: 2017Q2

REPORT INFORMATION
  Report Type: Spontaneous
  Country: US (occurrence: US)
  Receive Date: 20170426
  Receipt Date: 20170426
  Transmission Date: 20170830
  Serious: Yes (Other)
  Sender: FDA-Public Use
  Company Number: US-JNJFOC-20170422141

PATIENT
  Age: 78 Year
  Sex: Female
  Weight: 72.58 kg

DRUGS (3)
  1. XARELTO [Suspect]
     Active Substance: RIVAROXABAN
     Indication: THROMBOSIS
     Route: 048
     Dates: start: 20160823
  2. ATENOLOL. [Concomitant]
     Active Substance: ATENOLOL
     Indication: HYPERTENSION
     Route: 065
  3. ANASTROZOLE. [Concomitant]
     Active Substance: ANASTROZOLE
     Indication: NEOPLASM MALIGNANT
     Route: 065

REACTIONS (7)
  - Lower limb fracture [Recovered/Resolved]
  - Product packaging issue [Unknown]
  - Arthropathy [Recovered/Resolved]
  - Fall [Recovered/Resolved]
  - Tooth fracture [Not Recovered/Not Resolved]
  - Weight increased [Not Recovered/Not Resolved]
  - Product lot number issue [Unknown]

NARRATIVE: CASE EVENT DATE: 201608
